FAERS Safety Report 7770821-6 (Version None)
Quarter: 2011Q3

REPORT INFORMATION
  Report Type: 
  Country: None (occurrence: None)
  Receive Date: 20110922
  Receipt Date: 20100921
  Transmission Date: 20111222
  Serious: No
  Sender: FDA-Public Use
  Company Number: US-ASTRAZENECA-2010SE44409

PATIENT
  Age: 32 Year
  Sex: Female
  Weight: 84.4 kg

DRUGS (3)
  1. SEROQUEL XR [Suspect]
     Indication: DEPRESSION
     Dosage: DAILY
     Route: 048
     Dates: start: 20090101
  2. EFFEXOR [Concomitant]
  3. LUNESTA [Concomitant]
     Indication: SLEEP DISORDER

REACTIONS (4)
  - PAIN [None]
  - BLOOD CHOLESTEROL INCREASED [None]
  - MEMORY IMPAIRMENT [None]
  - WEIGHT INCREASED [None]
